FAERS Safety Report 8222391-6 (Version None)
Quarter: 2012Q1

REPORT INFORMATION
  Report Type: 
  Country: None (occurrence: None)
  Receive Date: 20120320
  Receipt Date: 20120313
  Transmission Date: 20120608
  Serious: Yes (Death, Hospitalization)
  Sender: FDA-Public Use
  Company Number: US-CELGENEUS-163-21660-12020345

PATIENT
  Sex: Male
  Weight: 110.32 kg

DRUGS (12)
  1. DEXAMETHASONE SODIUM PHOSPHATE [Concomitant]
     Dosage: 10 MILLIGRAM
     Route: 041
  2. GRANISETRON  HCL [Concomitant]
     Dosage: 1 MILLIGRAM
     Route: 041
  3. LEVAQUIN [Concomitant]
     Dosage: 500 MILLIGRAM
     Route: 048
  4. DULERA ORAL INHALATION [Concomitant]
     Route: 055
  5. JANUMET [Concomitant]
     Dosage: 1 TABLET
     Route: 048
  6. CRESTOR [Concomitant]
     Dosage: 1 TABLET
     Route: 048
  7. ABRAXANE [Suspect]
     Dosage: 195 MILLIGRAM
     Route: 041
     Dates: start: 20111004
  8. CARBOPLATIN [Concomitant]
     Dosage: 265-270MG
     Route: 041
     Dates: start: 20111004
  9. DIFLUCAN [Concomitant]
     Dosage: 100 MILLIGRAM
     Route: 048
  10. AZOR [Concomitant]
     Dosage: 1 TABLET
     Route: 048
  11. SPIRIVA [Concomitant]
     Route: 055
  12. PROCHLORPERAZINE MALEATE [Concomitant]
     Dosage: 10 MILLIGRAM
     Route: 048

REACTIONS (1)
  - DEATH [None]
